FAERS Safety Report 10235000 (Version 1)
Quarter: 2014Q2

REPORT INFORMATION
  Report Type: Spontaneous
  Country: US (occurrence: None)
  Receive Date: 20140611
  Receipt Date: 20140611
  Transmission Date: 20141212
  Serious: Yes (Death, Life-Threatening, Hospitalization, Other)
  Sender: FDA-Public Use
  Company Number: FK201402244

PATIENT
  Age: 81 Year
  Sex: Female
  Weight: 65.5 kg

DRUGS (5)
  1. FLUOROURACIL [Suspect]
     Indication: ADENOCARCINOMA OF COLON
     Route: 040
     Dates: start: 20131113
  2. ELOXATIN [Suspect]
     Indication: ADENOCARCINOMA OF COLON
     Route: 042
     Dates: start: 20131113
  3. LEUCOVORIN CALCIUM [Concomitant]
  4. PEGFILGRASTIM (PEGFILGRASTIM) [Concomitant]
  5. CELECOXIB/ PLACEBO [Suspect]
     Indication: ADENOCARCINOMA OF COLON
     Route: 048
     Dates: start: 20131113

REACTIONS (12)
  - Hyponatraemia [None]
  - Syncope [None]
  - Gastric haemorrhage [None]
  - Neutropenia [None]
  - Hypophagia [None]
  - Dehydration [None]
  - Diarrhoea [None]
  - Anaemia [None]
  - Platelet count decreased [None]
  - Nausea [None]
  - Sepsis [None]
  - Gastrointestinal haemorrhage [None]
